FAERS Safety Report 10273189 (Version 1)
Quarter: 2014Q2

REPORT INFORMATION
  Report Type: Spontaneous
  Country: US (occurrence: None)
  Receive Date: 20140630
  Receipt Date: 20140630
  Transmission Date: 20141212
  Serious: No
  Sender: FDA-Public Use
  Company Number: None

PATIENT
  Age: 85 Year
  Sex: Female
  Weight: 50.8 kg

DRUGS (10)
  1. XARELTO [Suspect]
     Indication: HEART RATE INCREASED
     Dosage: 20 MG ?1 DAILY PILL ?1 DAILY?MOUTH
     Route: 048
     Dates: start: 201309, end: 201310
  2. XARELTO [Suspect]
     Indication: THROMBOSIS PROPHYLAXIS
     Dosage: 20 MG ?1 DAILY PILL ?1 DAILY?MOUTH
     Route: 048
     Dates: start: 201309, end: 201310
  3. RESTORIL [Concomitant]
  4. VALUIM [Concomitant]
  5. IBUPROTRIUM NOSE SPRAY [Concomitant]
  6. PREMIUM VAGINAL CREAM [Concomitant]
  7. MULTI-VITAMINS [Concomitant]
  8. CALCIUM [Concomitant]
  9. FLAX OIL [Concomitant]
  10. MINERALS [Concomitant]

REACTIONS (2)
  - Alopecia [None]
  - Chest discomfort [None]
